FAERS Safety Report 5724904-2 (Version None)
Quarter: 2008Q2

REPORT INFORMATION
  Report Type: 
  Country: None (occurrence: None)
  Receive Date: 20080429
  Receipt Date: 20080201
  Transmission Date: 20081010
  Serious: Yes (Death)
  Sender: FDA-Public Use
  Company Number: 2008US000346

PATIENT
  Age: 54 Year
  Sex: Male

DRUGS (20)
  1. AMBISOME [Suspect]
     Indication: SYSTEMIC CANDIDA
     Dosage: 120 MG, UID/QD, IV DRIP; 130 MG, UID/QD, IV DRIP
     Route: 041
     Dates: start: 20071105, end: 20071113
  2. AMBISOME [Suspect]
     Indication: SYSTEMIC CANDIDA
     Dosage: 120 MG, UID/QD, IV DRIP; 130 MG, UID/QD, IV DRIP
     Route: 041
     Dates: start: 20071116, end: 20071121
  3. FUNGUARD(MICAFUNGIN SODIUM) [Suspect]
     Indication: DRUG USE FOR UNKNOWN INDICATION
     Dosage: 150 MG, UID/QD, IV DRIP
     Route: 041
     Dates: start: 20071020, end: 20071023
  4. ROXATIDINE ACETATE HCL [Concomitant]
  5. ZOLPIDEM TARTRATE [Concomitant]
  6. POLARAMINE [Concomitant]
  7. URSO 250 [Concomitant]
  8. BIO THREE [Concomitant]
  9. GASMOTIN (MOSAPRIDE CITRATE) [Concomitant]
  10. SANDIMMUNE [Concomitant]
  11. OMEGACIN (BIAPENEM) [Concomitant]
  12. TARGOCID [Concomitant]
  13. SOLU-CORTEF [Concomitant]
  14. FINIBAX [Concomitant]
  15. HABEKACIN (ARBEKACIN) [Concomitant]
  16. SOLU-MEDROL [Concomitant]
  17. VFEND [Concomitant]
  18. ITRACONAZOLE [Concomitant]
  19. ELASPOL (SIVELESTAT) [Concomitant]
  20. MINOCYCLINE HCL [Concomitant]

REACTIONS (3)
  - BLOOD ALKALINE PHOSPHATASE INCREASED [None]
  - GAMMA-GLUTAMYLTRANSFERASE INCREASED [None]
  - INTERSTITIAL LUNG DISEASE [None]
